FAERS Safety Report 6381137 (Version 6)
Quarter: 2012Q4

REPORT INFORMATION
  Report Type: 
  Country: CA (occurrence: CA)
  Receive Date: 20070813
  Receipt Date: 20121111
  Transmission Date: 20130627
  Serious: Yes (Hospitalization, Other)
  Sender: FDA-Public Use
  Company Number: PHMT2006CA02098

PATIENT
  Sex: Female

DRUGS (5)
  1. SANDOSTATIN LAR [Suspect]
     Indication: CARCINOID TUMOUR
     Dosage: 60 mg, TIW
     Route: 030
     Dates: start: 20040320
  2. SANDOSTATIN LAR [Suspect]
     Dosage: 60 mg every 4 weeks
     Route: 030
     Dates: start: 1998
  3. ATENOLOL [Concomitant]
  4. INHIBACE [Concomitant]
  5. OXAZEPAM [Concomitant]

REACTIONS (38)
  - Post procedural pneumonia [Unknown]
  - Malignant neoplasm progression [Not Recovered/Not Resolved]
  - Abdominal neoplasm [Unknown]
  - Intestinal obstruction [Unknown]
  - Metastases to uterus [Unknown]
  - Metastases to ovary [Unknown]
  - Vaginal haemorrhage [Not Recovered/Not Resolved]
  - Pelvic neoplasm [Not Recovered/Not Resolved]
  - Metastases to fallopian tube [Unknown]
  - Chest wall mass [Unknown]
  - Flank pain [Unknown]
  - Metastases to bone [Unknown]
  - Bone pain [Unknown]
  - Cystitis [Unknown]
  - Fatigue [Unknown]
  - Blood pressure systolic increased [Unknown]
  - Lethargy [Unknown]
  - Asthenia [Unknown]
  - Lower respiratory tract infection [Unknown]
  - Wheezing [Unknown]
  - Injection site discomfort [Unknown]
  - Constipation [Unknown]
  - Palpitations [Unknown]
  - Tachycardia [Unknown]
  - Abdominal pain [Unknown]
  - Abdominal distension [Unknown]
  - Weight decreased [Unknown]
  - Diarrhoea [Unknown]
  - Abdominal pain upper [Unknown]
  - Pelvic discomfort [Unknown]
  - Micturition urgency [Unknown]
  - Urine output increased [Unknown]
  - Headache [Unknown]
  - Depression [Not Recovered/Not Resolved]
  - Flushing [Unknown]
  - Malaise [Unknown]
  - Influenza [Unknown]
  - Insomnia [Unknown]
